FAERS Safety Report 11914610 (Version 1)
Quarter: 2016Q1

REPORT INFORMATION
  Report Type: Spontaneous
  Country: GB (occurrence: GB)
  Receive Date: 20160113
  Receipt Date: 20160113
  Transmission Date: 20160526
  Serious: Yes (Other)
  Sender: FDA-Public Use
  Company Number: PHHY2016GB000596

PATIENT
  Age: 41 Year
  Sex: Female

DRUGS (2)
  1. PARACETAMOL [Suspect]
     Active Substance: ACETAMINOPHEN
     Indication: PRODUCT USED FOR UNKNOWN INDICATION
     Route: 065
  2. INFLUENZA VIRUS VACCINE [Suspect]
     Active Substance: INFLUENZA VIRUS VACCINE
     Indication: IMMUNISATION
     Dosage: .5 ML
     Route: 030
     Dates: start: 20151008, end: 20151008

REACTIONS (7)
  - Noninfective encephalitis [Recovered/Resolved]
  - Headache [Recovered/Resolved]
  - Vaccination site warmth [Recovered/Resolved]
  - Influenza like illness [Recovered/Resolved]
  - Vaccination site erythema [Recovered/Resolved]
  - Gastrointestinal disorder [Recovered/Resolved]
  - Vaccination site swelling [Recovered/Resolved]

NARRATIVE: CASE EVENT DATE: 20151008
